FAERS Safety Report 7893669-0 (Version None)
Quarter: 2011Q4

REPORT INFORMATION
  Report Type: 
  Country: None (occurrence: None)
  Receive Date: 20111104
  Receipt Date: 20111031
  Transmission Date: 20120403
  Serious: Yes (Life-Threatening, Hospitalization, Other)
  Sender: FDA-Public Use
  Company Number: JP-BRISTOL-MYERS SQUIBB COMPANY-14931786

PATIENT
  Age: 66 Year
  Sex: Male
  Weight: 70 kg

DRUGS (6)
  1. TEGAFUR + GIMERACIL + OTERACIL POTASSIUM [Suspect]
     Indication: RECTAL CANCER
     Dosage: FORM = CAPSULES.ALSO 40MG/M2:2PER1DAY
     Route: 048
     Dates: start: 20091202, end: 20091209
  2. POLARAMINE [Concomitant]
     Indication: PREMEDICATION
     Route: 042
  3. DECADRON [Concomitant]
     Indication: PREMEDICATION
     Route: 042
  4. ERBITUX [Suspect]
     Indication: RECTAL CANCER
     Dosage: 693 MG ON 02DEC09 445 MG FROM 09DEC09 16DEC09:3INF RECENT 400MG/M2:1/WK:IV.REDUCED 250MG/M2
     Route: 042
     Dates: start: 20091202
  5. IRINOTECAN HCL [Suspect]
     Indication: RECTAL CANCER
     Dosage: 100MG/M2.IV:1 PER 2 WEEKS
     Route: 042
     Dates: start: 20091202
  6. PRIMPERAN TAB [Concomitant]
     Indication: ANTIEMETIC SUPPORTIVE CARE
     Route: 042
     Dates: start: 20091207, end: 20091216

REACTIONS (7)
  - ANAEMIA [None]
  - GASTRIC ULCER [None]
  - GASTROINTESTINAL HAEMORRHAGE [None]
  - HYPOTENSION [None]
  - DECREASED APPETITE [None]
  - ACNE [None]
  - FATIGUE [None]
